FAERS Safety Report 4748138-3 (Version None)
Quarter: 2005Q3

REPORT INFORMATION
  Report Type: 
  Country: None (occurrence: None)
  Receive Date: 20050816
  Receipt Date: 20050803
  Transmission Date: 20060218
  Serious: Yes (Hospitalization)
  Sender: FDA-Public Use
  Company Number: 001-0902-M0000088

PATIENT
  Age: 53 Year
  Sex: Female
  Weight: 90.7194 kg

DRUGS (4)
  1. NARDIL [Suspect]
     Indication: AGORAPHOBIA
     Dosage: (15 MG), ORAL
     Route: 048
     Dates: start: 19860101
  2. NARDIL [Suspect]
     Indication: ANXIETY
     Dosage: (15 MG), ORAL
     Route: 048
     Dates: start: 19860101
  3. NARDIL [Suspect]
     Indication: DEPRESSION
     Dosage: (15 MG), ORAL
     Route: 048
     Dates: start: 19860101
  4. XANAX [Concomitant]

REACTIONS (9)
  - ASTHENIA [None]
  - BEDRIDDEN [None]
  - BLOOD PRESSURE INCREASED [None]
  - DEPRESSION [None]
  - FATIGUE [None]
  - INSOMNIA [None]
  - MANIA [None]
  - PHARMACEUTICAL PRODUCT COMPLAINT [None]
  - POOR QUALITY DRUG ADMINISTERED [None]
